FAERS Safety Report 25330270 (Version 1)
Quarter: 2025Q2

REPORT INFORMATION
  Report Type: Spontaneous
  Country: DE (occurrence: DE)
  Receive Date: 20250519
  Receipt Date: 20250519
  Transmission Date: 20250716
  Serious: No
  Sender: ASTELLAS
  Company Number: DE-ASTELLAS-2025-AER-026180

PATIENT
  Sex: Female

DRUGS (2)
  1. VEOZAH [Suspect]
     Active Substance: FEZOLINETANT
     Indication: Hot flush
     Route: 050
  2. VEOZAH [Suspect]
     Active Substance: FEZOLINETANT
     Route: 050

REACTIONS (2)
  - Liver disorder [Unknown]
  - Inappropriate schedule of product administration [Unknown]
